FAERS Safety Report 7981113-4 (Version None)
Quarter: 2011Q4

REPORT INFORMATION
  Report Type: 
  Country: None (occurrence: None)
  Receive Date: 20111212
  Receipt Date: 20111128
  Transmission Date: 20120403
  Serious: Yes (Death, Life-Threatening)
  Sender: FDA-Public Use
  Company Number: 2011MA016916

PATIENT
  Age: 77 Year
  Sex: Female

DRUGS (7)
  1. DIGOXIN [Suspect]
     Dosage: 0.25 MG;PO
     Route: 048
     Dates: start: 20080105, end: 20080408
  2. COUMADIN [Concomitant]
  3. DOPAMINE HCL [Concomitant]
  4. LEVOPHED [Concomitant]
  5. ATENOLOL [Concomitant]
  6. CARDIZEM [Concomitant]
  7. KLOR-CON [Concomitant]

REACTIONS (16)
  - RESPIRATION ABNORMAL [None]
  - ACUTE RESPIRATORY FAILURE [None]
  - ELECTROCARDIOGRAM ST SEGMENT ELEVATION [None]
  - HYPOXIC-ISCHAEMIC ENCEPHALOPATHY [None]
  - DYSPNOEA [None]
  - FAMILY STRESS [None]
  - ECONOMIC PROBLEM [None]
  - PNEUMONIA ASPIRATION [None]
  - MULTIPLE INJURIES [None]
  - ACUTE MYOCARDIAL INFARCTION [None]
  - ELECTROCARDIOGRAM ST SEGMENT DEPRESSION [None]
  - LUNG INFILTRATION [None]
  - ATRIAL FIBRILLATION [None]
  - CARDIOGENIC SHOCK [None]
  - ATRIAL FLUTTER [None]
  - CARDIOACTIVE DRUG LEVEL DECREASED [None]
